FAERS Safety Report 13174882 (Version 2)
Quarter: 2018Q1

REPORT INFORMATION
  Report Type: Spontaneous
  Country: US (occurrence: US)
  Receive Date: 20170201
  Receipt Date: 20180126
  Transmission Date: 20180508
  Serious: No
  Sender: FDA-Public Use
  Company Number: US-ABBVIE-16P-163-1562635-00

PATIENT

DRUGS (4)
  1. HUMIRA [Suspect]
     Active Substance: ADALIMUMAB
     Indication: PSORIASIS
  2. HUMIRA [Suspect]
     Active Substance: ADALIMUMAB
     Indication: ANKYLOSING SPONDYLITIS
  3. HUMIRA [Suspect]
     Active Substance: ADALIMUMAB
     Indication: RHEUMATOID ARTHRITIS
  4. HUMIRA [Suspect]
     Active Substance: ADALIMUMAB
     Indication: PSORIATIC ARTHROPATHY
     Route: 058

REACTIONS (29)
  - Joint range of motion decreased [Unknown]
  - Irritability [Unknown]
  - Inflammation [Unknown]
  - Cardiac disorder [Unknown]
  - Psychiatric symptom [Unknown]
  - Nerve compression [Unknown]
  - Pain [Not Recovered/Not Resolved]
  - Stress [Recovered/Resolved]
  - Vomiting [Unknown]
  - Nausea [Unknown]
  - Mobility decreased [Unknown]
  - Injury [Unknown]
  - Heart rate abnormal [Unknown]
  - Condition aggravated [Unknown]
  - Fatigue [Not Recovered/Not Resolved]
  - Insomnia [Unknown]
  - Arthralgia [Unknown]
  - Drug effect decreased [Unknown]
  - Skin disorder [Unknown]
  - Feeling abnormal [Unknown]
  - Palpitations [Not Recovered/Not Resolved]
  - Back pain [Unknown]
  - Musculoskeletal discomfort [Unknown]
  - Loss of personal independence in daily activities [Unknown]
  - Fear [Unknown]
  - Frustration tolerance decreased [Unknown]
  - Feeling guilty [Unknown]
  - Emotional distress [Recovered/Resolved]
  - Asthenia [Unknown]

NARRATIVE: CASE EVENT DATE: 2016
